FAERS Safety Report 8988643 (Version 5)
Quarter: 2013Q4

REPORT INFORMATION
  Report Type: Spontaneous
  Country: ES (occurrence: ES)
  Receive Date: 20121227
  Receipt Date: 20131118
  Transmission Date: 20140711
  Serious: Yes (Death, Hospitalization, Disabling)
  Sender: FDA-Public Use
  Company Number: ES-ELI_LILLY_AND_COMPANY-ES201212006594

PATIENT
  Sex: Male

DRUGS (12)
  1. ALIMTA [Suspect]
     Indication: LUNG ADENOCARCINOMA STAGE III
     Dosage: 500 MG/M2, MONTHLY (1/M)
     Route: 042
     Dates: start: 20120821, end: 20121211
  2. CISPLATIN [Interacting]
     Indication: LUNG ADENOCARCINOMA
     Dosage: UNK UNK, MONTHLY (1/M)
     Route: 042
     Dates: start: 20120821
  3. FOLIC ACID [Concomitant]
     Dosage: 1 DF, QD
  4. VITAMIN B12 [Concomitant]
     Dosage: 1 DF, EVERY 9 WEEKS
  5. ALMAX [Concomitant]
  6. LORAZEPAM [Concomitant]
     Dosage: 1 MG, UNK
  7. TAMSULOSIN [Concomitant]
     Dosage: 0.4 MG, QD
  8. PEITEL [Concomitant]
  9. FERRO-GRADUMET [Concomitant]
  10. BUDESONIDE [Concomitant]
     Dosage: 200 UG, UNK
  11. ATROVENT [Concomitant]
  12. SALBUTAMOL [Concomitant]

REACTIONS (5)
  - Respiratory failure [Fatal]
  - Cardiac failure [Fatal]
  - Pyrexia [Fatal]
  - Subclavian artery occlusion [Recovered/Resolved]
  - Necrosis [Not Recovered/Not Resolved]
